FAERS Safety Report 11284212 (Version 1)
Quarter: 2015Q3

REPORT INFORMATION
  Report Type: Spontaneous
  Country: US (occurrence: US)
  Receive Date: 20150720
  Receipt Date: 20150720
  Transmission Date: 20151125
  Serious: No
  Sender: FDA-Public Use
  Company Number: US-BAUSCH-BL-2015-014707

PATIENT
  Sex: Female
  Weight: 60.84 kg

DRUGS (4)
  1. CLONAZEPAM. [Concomitant]
     Active Substance: CLONAZEPAM
     Indication: ANXIETY
     Route: 048
  2. LEVOXYL [Concomitant]
     Active Substance: LEVOTHYROXINE SODIUM
     Indication: HYPOTHYROIDISM
     Route: 048
  3. LACRISERT [Suspect]
     Active Substance: HYDROXYPROPYL CELLULOSE
     Indication: BLEPHARITIS
     Dosage: USED APPROXIMATELY FOUR TIMES, ONE IN EACH EYE
     Route: 047
     Dates: start: 2015, end: 2015
  4. LACRISERT [Suspect]
     Active Substance: HYDROXYPROPYL CELLULOSE
     Indication: DRY EYE

REACTIONS (2)
  - Excessive eye blinking [Unknown]
  - Eye irritation [Unknown]

NARRATIVE: CASE EVENT DATE: 2015
